FAERS Safety Report 20866414 (Version 1)
Quarter: 2022Q2

REPORT INFORMATION
  Report Type: Spontaneous
  Country: US (occurrence: US)
  Receive Date: 20220524
  Receipt Date: 20220524
  Transmission Date: 20220721
  Serious: No
  Sender: FDA-Public Use
  Company Number: US-PFIZER INC-202200645203

PATIENT
  Age: 42 Year
  Sex: Female

DRUGS (1)
  1. NIVESTYM [Suspect]
     Active Substance: FILGRASTIM-AAFI
     Indication: Infertility female
     Dosage: 60 UG, DAILY

REACTIONS (3)
  - COVID-19 [Unknown]
  - Malaise [Unknown]
  - Off label use [Unknown]
